FAERS Safety Report 21409175 (Version 1)
Quarter: 2022Q4

REPORT INFORMATION
  Report Type: Report from Study
  Country: GB (occurrence: GB)
  Receive Date: 20221004
  Receipt Date: 20221004
  Transmission Date: 20230112
  Serious: Yes (Hospitalization)
  Sender: FDA-Public Use
  Company Number: GB-PFIZER INC-PV202200073477

PATIENT
  Age: 53 Year
  Sex: Female
  Weight: 54 kg

DRUGS (21)
  1. SUNITINIB MALATE [Suspect]
     Active Substance: SUNITINIB MALATE
     Dosage: 25 MG, 1X/DAY
     Dates: start: 20220315
  2. NIVOLUMAB [Suspect]
     Active Substance: NIVOLUMAB
     Dosage: 240 MG EVERY 2 WEEJS
     Dates: start: 20220329
  3. ZEROBASE [PARAFFIN, LIQUID] [Concomitant]
     Indication: Dry skin
     Dosage: UNK
     Route: 061
     Dates: start: 20220413
  4. LACTULOSE [Concomitant]
     Active Substance: LACTULOSE
     Dosage: 15 ML, OD-BD
     Dates: start: 20220413
  5. LANSOPRAZOLE [Concomitant]
     Active Substance: LANSOPRAZOLE
     Dosage: UNK
     Dates: start: 20220413
  6. CHLORHEXIDINE HYDROCHLORIDE\NEOMYCIN SULFATE [Concomitant]
     Active Substance: CHLORHEXIDINE HYDROCHLORIDE\NEOMYCIN SULFATE
     Dosage: UNK
     Route: 061
     Dates: start: 20220329
  7. LEVOTHYROXINE [Concomitant]
     Active Substance: LEVOTHYROXINE
     Indication: Hypothyroidism
     Dosage: 25 UG, 1X/DAY
  8. LEVOTHYROXINE [Concomitant]
     Active Substance: LEVOTHYROXINE
     Dosage: 50 UG
     Dates: start: 20220413
  9. POLYETHYLENE GLYCOLS [Concomitant]
     Active Substance: POLYETHYLENE GLYCOLS
     Indication: Constipation
     Dosage: UNK, 2X/DAY
  10. VITAMIN D NOS [Concomitant]
     Active Substance: VITAMIN D NOS
     Indication: Nutritional supplementation
     Dosage: 1000 IU, 1X/DAY
  11. CHLORHEXIDINE GLUCONATE [Concomitant]
     Active Substance: CHLORHEXIDINE GLUCONATE
  12. HYDROMOL [EMULSIFYING WAX;PARAFFIN SOFT] [Concomitant]
     Dosage: 11 %
     Dates: start: 20220513
  13. HYPROMELLOSES [Concomitant]
     Active Substance: HYPROMELLOSES
     Indication: Dry eye
     Dosage: UNK
     Dates: start: 20220526
  14. PARAFFIN [Concomitant]
     Active Substance: PARAFFIN
     Dosage: 50:50
     Dates: start: 20220526
  15. HYDROCORTISONE [Concomitant]
     Active Substance: HYDROCORTISONE
     Indication: Angular cheilitis
     Dosage: UNK
     Dates: start: 20220526
  16. CETIRIZINE [Concomitant]
     Active Substance: CETIRIZINE HYDROCHLORIDE
     Indication: Pruritus
     Dosage: 10 MG, AS NEEDED
     Dates: start: 20220603
  17. COVID-19 VACCINE [Concomitant]
     Dosage: BOOSTER, SINGLE DOSE
     Dates: start: 20220709, end: 20220709
  18. VISIONACE [Concomitant]
     Dosage: UNK
     Dates: start: 20220512
  19. ANUSOL [ATROPA BELLADONNA;BISMUTH TRIBROMOPHENATE;ZINC SULFATE HEPTAHY [Concomitant]
     Indication: Haemorrhoids
     Dosage: UNK
     Route: 061
     Dates: start: 20220716
  20. PROCTOSEDYL [AMYLOCAINE HYDROCHLORIDE;BENZALKONIUM CHLORIDE;BENZOCAINE [Concomitant]
     Indication: Haemorrhoids
     Dosage: UNK
     Dates: start: 20220728
  21. FUROSEMIDE [Concomitant]
     Active Substance: FUROSEMIDE
     Indication: Oedema peripheral
     Dosage: 40 MG, 1X/DAY
     Dates: start: 20220728

REACTIONS (1)
  - Colitis [Not Recovered/Not Resolved]
